FAERS Safety Report 12204112 (Version 1)
Quarter: 2016Q1

REPORT INFORMATION
  Report Type: Spontaneous
  Country: US (occurrence: None)
  Receive Date: 20160322
  Receipt Date: 20160322
  Transmission Date: 20160526
  Serious: No
  Sender: FDA-Public Use
  Company Number: None

PATIENT
  Age: 65 Year
  Sex: Female

DRUGS (1)
  1. REPATHA [Suspect]
     Active Substance: EVOLOCUMAB
     Indication: HYPERLIPIDAEMIA
     Dosage: 140MG EVERY 2 WEEKS SUBCUTANEOUSLY
     Route: 058
     Dates: start: 20160307, end: 20160310

REACTIONS (3)
  - Dysgeusia [None]
  - Hypoaesthesia oral [None]
  - Muscle spasms [None]

NARRATIVE: CASE EVENT DATE: 20160310
